FAERS Safety Report 7890206-1 (Version None)
Quarter: 2011Q4

REPORT INFORMATION
  Report Type: 
  Country: None (occurrence: None)
  Receive Date: 20111103
  Receipt Date: 20110722
  Transmission Date: 20120403
  Serious: Yes (Other)
  Sender: FDA-Public Use
  Company Number: US-AMGEN-USASP2011018310

PATIENT
  Age: 51 Year
  Sex: Male

DRUGS (3)
  1. ENBREL [Suspect]
     Indication: RHEUMATOID ARTHRITIS
     Dosage: 50 MG, QWK
     Dates: start: 20110323, end: 20110401
  2. METHOTREXATE [Concomitant]
     Dates: start: 20070101
  3. METHOTREXATE [Concomitant]
     Dates: start: 20070101

REACTIONS (8)
  - INSOMNIA [None]
  - HYPERHIDROSIS [None]
  - DYSPNOEA [None]
  - THERAPEUTIC RESPONSE DECREASED [None]
  - ARTHRALGIA [None]
  - PRURITUS [None]
  - HYPERSENSITIVITY [None]
  - RHEUMATOID ARTHRITIS [None]
